FAERS Safety Report 9630098 (Version 1)
Quarter: 2013Q4

REPORT INFORMATION
  Report Type: Spontaneous
  Country: US (occurrence: US)
  Receive Date: 20131017
  Receipt Date: 20131017
  Transmission Date: 20140711
  Serious: No
  Sender: FDA-Public Use
  Company Number: US-009507513-1309USA008291

PATIENT
  Sex: Male

DRUGS (3)
  1. ASMANEX TWISTHALER [Suspect]
     Dosage: 200,2 PUFFS, BID,120 DOSE UNIT
     Route: 055
     Dates: start: 201306
  2. ASMANEX TWISTHALER [Suspect]
     Dosage: 200,2 DF, BID,60 DOSE UNIT
     Route: 055
     Dates: start: 2013
  3. ASMANEX TWISTHALER [Suspect]
     Dosage: UNK

REACTIONS (3)
  - Drug dose omission [Unknown]
  - Device malfunction [Unknown]
  - No adverse event [Unknown]
